FAERS Safety Report 25178471 (Version 4)
Quarter: 2025Q3

REPORT INFORMATION
  Report Type: Report from Study
  Country: US (occurrence: US)
  Receive Date: 20250409
  Receipt Date: 20250731
  Transmission Date: 20251020
  Serious: No
  Sender: SANDOZ
  Company Number: US-SANDOZ-SDZ2025US021146

PATIENT
  Age: 12 Year
  Sex: Male

DRUGS (4)
  1. OMNITROPE [Suspect]
     Active Substance: SOMATROPIN
     Indication: Short stature
     Dosage: 1.1 MG, QD (OMNITROPE PEN 10)
     Route: 058
     Dates: start: 20250307
  2. OMNITROPE [Suspect]
     Active Substance: SOMATROPIN
     Indication: Short stature
     Dosage: 1.1 MG, QD (OMNITROPE PEN 10)
     Route: 058
     Dates: start: 20250307
  3. OMNITROPE [Suspect]
     Active Substance: SOMATROPIN
     Route: 065
  4. OMNITROPE [Suspect]
     Active Substance: SOMATROPIN
     Route: 065

REACTIONS (4)
  - Incorrect dose administered by device [Unknown]
  - Product dose omission issue [Unknown]
  - Device breakage [Unknown]
  - Device leakage [Unknown]

NARRATIVE: CASE EVENT DATE: 20250307
